FAERS Safety Report 18506150 (Version 1)
Quarter: 2020Q4

REPORT INFORMATION
  Report Type: Spontaneous
  Country: US (occurrence: US)
  Receive Date: 20201116
  Receipt Date: 20201116
  Transmission Date: 20210114
  Serious: No
  Sender: FDA-Public Use
  Company Number: US-PFIZER INC-2020443307

PATIENT
  Age: 54 Year
  Sex: Female
  Weight: 63.5 kg

DRUGS (5)
  1. EFFEXOR XR [Suspect]
     Active Substance: VENLAFAXINE HYDROCHLORIDE
     Indication: ANXIETY
     Dosage: 1 DF, ONCE A DAY (WENT TO THIS ONE TIME TABLET)
     Dates: start: 20201022
  2. EFFEXOR XR [Suspect]
     Active Substance: VENLAFAXINE HYDROCHLORIDE
     Indication: DEPRESSION
     Dosage: 225 MG, 1X/DAY
     Dates: start: 202008
  3. EFFEXOR XR [Suspect]
     Active Substance: VENLAFAXINE HYDROCHLORIDE
     Dosage: 150 MG, UNKNOWN FREQUENCY (IN THE LAST TWO DAYS, HAD TAKEN 150 FROM THE PREVIOUS DOSE)
     Dates: start: 202011
  4. SINGULAIR [Concomitant]
     Active Substance: MONTELUKAST SODIUM
     Indication: ASTHMA
     Dosage: UNK
  5. HYDROCHLOROTHIAZIDE. [Concomitant]
     Active Substance: HYDROCHLOROTHIAZIDE
     Dosage: UNK

REACTIONS (12)
  - Fatigue [Unknown]
  - Tremor [Unknown]
  - Vision blurred [Unknown]
  - Visual impairment [Unknown]
  - Hyperhidrosis [Unknown]
  - Tinnitus [Unknown]
  - Muscle tightness [Unknown]
  - Heart rate increased [Unknown]
  - Headache [Unknown]
  - Decreased appetite [Unknown]
  - Dizziness [Unknown]
  - Chills [Unknown]

NARRATIVE: CASE EVENT DATE: 2020
